FAERS Safety Report 10249027 (Version 1)
Quarter: 2014Q2

REPORT INFORMATION
  Report Type: Spontaneous
  Country: FR (occurrence: FR)
  Receive Date: 20140620
  Receipt Date: 20140620
  Transmission Date: 20141212
  Serious: Yes (Life-Threatening)
  Sender: FDA-Public Use
  Company Number: FR-ASTRAZENECA-2014SE45316

PATIENT
  Sex: Female

DRUGS (1)
  1. XEROQUEL [Suspect]
     Route: 048

REACTIONS (3)
  - Suicide attempt [Unknown]
  - Restless legs syndrome [Unknown]
  - Therapy cessation [Unknown]
